FAERS Safety Report 22003747 (Version 1)
Quarter: 2023Q1

REPORT INFORMATION
  Report Type: Spontaneous
  Country: GB (occurrence: GB)
  Receive Date: 20230217
  Receipt Date: 20230217
  Transmission Date: 20230418
  Serious: Yes (Hospitalization)
  Sender: FDA-Public Use
  Company Number: GB-MHRA-MED-202302021515354880-YTBMN

PATIENT
  Age: 17 Year
  Sex: Female

DRUGS (2)
  1. ISOTRETINOIN [Suspect]
     Active Substance: ISOTRETINOIN
     Indication: Acne
     Dosage: 20 MILLIGRAM, QD, CAPSULE
     Route: 065
     Dates: start: 20221123, end: 20230125
  2. GEDAREL [Concomitant]
     Indication: Contraception
     Dosage: UNK
     Route: 065

REACTIONS (1)
  - Feelings of worthlessness [Not Recovered/Not Resolved]

NARRATIVE: CASE EVENT DATE: 20230121
